FAERS Safety Report 24852913 (Version 2)
Quarter: 2025Q2

REPORT INFORMATION
  Report Type: Spontaneous
  Country: JP (occurrence: JP)
  Receive Date: 20250116
  Receipt Date: 20250417
  Transmission Date: 20250716
  Serious: Yes (Death, Other)
  Sender: BRISTOL MYERS SQUIBB
  Company Number: JP-BRISTOL-MYERS SQUIBB COMPANY-2025-002310

PATIENT
  Age: 64 Year
  Sex: Female

DRUGS (7)
  1. AZACITIDINE [Suspect]
     Active Substance: AZACITIDINE
     Indication: Acute myelomonocytic leukaemia
     Route: 042
  2. AZACITIDINE [Suspect]
     Active Substance: AZACITIDINE
     Indication: Myelodysplastic syndrome
  3. HYDROXYUREA [Concomitant]
     Active Substance: HYDROXYUREA
     Indication: Acute myelomonocytic leukaemia
  4. ASPIRIN [Concomitant]
     Active Substance: ASPIRIN
     Indication: Pericarditis
  5. COLCHICINE [Concomitant]
     Active Substance: COLCHICINE
     Indication: Pericarditis
  6. PREDNISOLONE [Concomitant]
     Active Substance: PREDNISOLONE
     Indication: Pericarditis
  7. COVID-19 VACCINE MRNA [Concomitant]
     Indication: COVID-19

REACTIONS (2)
  - Disseminated intravascular coagulation [Fatal]
  - Cerebral haemorrhage [Fatal]
